FAERS Safety Report 15041874 (Version 1)
Quarter: 2018Q3

REPORT INFORMATION
  Report Type: Spontaneous
  Country: US (occurrence: US)
  Receive Date: 20180621
  Receipt Date: 20180621
  Transmission Date: 20181010
  Serious: No
  Sender: FDA-Public Use
  Company Number: US-THE MEDICINES COMPANY-US-MDCO-17-00288

PATIENT
  Sex: Female

DRUGS (1)
  1. MINOCIN [Suspect]
     Active Substance: MINOCYCLINE HYDROCHLORIDE
     Indication: LYME DISEASE
     Dosage: NOT REPORTED
     Route: 041

REACTIONS (3)
  - Oral pain [Unknown]
  - Off label use [Unknown]
  - Tooth discolouration [Unknown]
